FAERS Safety Report 6266173-3 (Version None)
Quarter: 2009Q3

REPORT INFORMATION
  Report Type: 
  Country: None (occurrence: None)
  Receive Date: 20090713
  Receipt Date: 20090702
  Transmission Date: 20100115
  Serious: Yes (Death, Hospitalization, Other)
  Sender: FDA-Public Use
  Company Number: IL-TEVA-200767ISR

PATIENT
  Age: 69 Year
  Sex: Male

DRUGS (10)
  1. VINCRISTINE [Suspect]
     Indication: B-CELL LYMPHOMA
     Route: 042
     Dates: start: 20070605, end: 20071101
  2. RITUXIMAB [Suspect]
     Indication: B-CELL LYMPHOMA
     Route: 042
     Dates: start: 20070605
  3. RITUXIMAB [Suspect]
     Dates: start: 20080311
  4. RITUXIMAB [Suspect]
     Dates: start: 20081016
  5. RITUXIMAB [Suspect]
     Dates: start: 20081023
  6. IBRITUMOMAB TIUXETAN [Suspect]
     Indication: B-CELL LYMPHOMA
     Dates: start: 20081023
  7. CYCLOPHOSPHAMIDE [Suspect]
     Indication: B-CELL LYMPHOMA
     Route: 042
     Dates: start: 20070605, end: 20071101
  8. DOXORUBICIN HCL [Suspect]
     Indication: B-CELL LYMPHOMA
     Route: 042
     Dates: start: 20070605, end: 20071101
  9. PREDNISONE [Suspect]
     Indication: B-CELL LYMPHOMA
     Route: 042
     Dates: start: 20070605, end: 20071101
  10. ANTIHYPERTENSIVES [Concomitant]

REACTIONS (3)
  - FEBRILE NEUTROPENIA [None]
  - NEUTROPENIA [None]
  - TUBERCULOSIS OF CENTRAL NERVOUS SYSTEM [None]
